FAERS Safety Report 7321283-4 (Version None)
Quarter: 2011Q1

REPORT INFORMATION
  Report Type: 
  Country: None (occurrence: None)
  Receive Date: 20110228
  Receipt Date: 20100222
  Transmission Date: 20110831
  Serious: Yes (Hospitalization)
  Sender: FDA-Public Use
  Company Number: US-PFIZER INC-2010026790

PATIENT

DRUGS (2)
  1. LITHIUM [Concomitant]
     Indication: BIPOLAR DISORDER
     Dosage: UNK
  2. GEODON [Suspect]
     Indication: BIPOLAR DISORDER
     Dosage: 160 MG, 1X/DAY
     Dates: start: 20090101

REACTIONS (2)
  - DRUG EXPOSURE DURING PREGNANCY [None]
  - TREMOR [None]
